FAERS Safety Report 12995559 (Version 2)
Quarter: 2016Q4

REPORT INFORMATION
  Report Type: Spontaneous
  Country: HR (occurrence: HR)
  Receive Date: 20161202
  Receipt Date: 20161205
  Transmission Date: 20170207
  Serious: Yes (Hospitalization, Other)
  Sender: FDA-Public Use
  Company Number: HR-JNJFOC-20161127458

PATIENT
  Sex: Male

DRUGS (5)
  1. XANAX [Suspect]
     Active Substance: ALPRAZOLAM
     Indication: SUICIDE ATTEMPT
     Route: 048
     Dates: start: 20160409, end: 20160409
  2. RISPOLEPT [Suspect]
     Active Substance: RISPERIDONE
     Indication: PRODUCT USED FOR UNKNOWN INDICATION
     Route: 048
     Dates: start: 20160409, end: 20160409
  3. LEPONEX [Suspect]
     Active Substance: CLOZAPINE
     Indication: SUICIDE ATTEMPT
     Route: 048
     Dates: start: 20160409, end: 20160409
  4. AKINETON [Suspect]
     Active Substance: BIPERIDEN HYDROCHLORIDE
     Indication: SUICIDE ATTEMPT
     Dosage: 30 TABLETS OF 2 MG
     Route: 048
     Dates: start: 20160409, end: 20160409
  5. RISPOLEPT [Suspect]
     Active Substance: RISPERIDONE
     Indication: PRODUCT USED FOR UNKNOWN INDICATION
     Route: 048

REACTIONS (5)
  - Suicide attempt [Unknown]
  - Blood creatine phosphokinase BB increased [Unknown]
  - Intentional overdose [Unknown]
  - Aggression [Unknown]
  - Confusional state [Unknown]

NARRATIVE: CASE EVENT DATE: 20160409
